FAERS Safety Report 12437419 (Version 1)
Quarter: 2016Q2

REPORT INFORMATION
  Report Type: Spontaneous
  Country: US (occurrence: None)
  Receive Date: 20160603
  Receipt Date: 20160603
  Transmission Date: 20160815
  Serious: Yes (Other)
  Sender: FDA-Public Use
  Company Number: None

PATIENT
  Age: 77 Year
  Sex: Female
  Weight: 56.7 kg

DRUGS (2)
  1. PREDNISOLONE MOXIFLOXACIN KETOROLAC APS [Suspect]
     Active Substance: KETOROLAC\MOXIFLOXACIN\PREDNISOLONE
     Indication: CATARACT OPERATION
     Dosage: 1 DROP 4 TIMES A DAY TOPICAL
     Route: 061
     Dates: start: 20150505, end: 20150606
  2. PREDNISOLONE MOXIFLOXACIN KETOROLAC APS [Suspect]
     Active Substance: KETOROLAC\MOXIFLOXACIN\PREDNISOLONE
     Indication: POSTOPERATIVE CARE
     Dosage: 1 DROP 4 TIMES A DAY TOPICAL
     Route: 061
     Dates: start: 20150505, end: 20150606

REACTIONS (3)
  - Product physical issue [None]
  - Burning sensation [None]
  - Product colour issue [None]

NARRATIVE: CASE EVENT DATE: 20160520
